FAERS Safety Report 21023488 (Version 1)
Quarter: 2022Q2

REPORT INFORMATION
  Report Type: Spontaneous
  Country: CN (occurrence: CN)
  Receive Date: 20220629
  Receipt Date: 20220629
  Transmission Date: 20220721
  Serious: Yes (Hospitalization)
  Sender: FDA-Public Use
  Company Number: CN-NAPPMUNDI-GBR-2022-0099244

PATIENT
  Age: 42 Year
  Sex: Male
  Weight: 70 kg

DRUGS (2)
  1. OXYCODONE HYDROCHLORIDE [Suspect]
     Active Substance: OXYCODONE HYDROCHLORIDE
     Indication: Pain
     Dosage: 40 MILLIGRAM, Q12H
     Route: 048
     Dates: start: 20211208
  2. OXYCODONE HYDROCHLORIDE [Suspect]
     Active Substance: OXYCODONE HYDROCHLORIDE
     Dosage: 80 MILLIGRAM, Q12H (EVERY 12 HOURS)
     Route: 048
     Dates: start: 20210615, end: 20211208

REACTIONS (5)
  - Osteotomy [Unknown]
  - Wound [Unknown]
  - Poor quality sleep [Recovering/Resolving]
  - Procedural pain [Recovering/Resolving]
  - Gastrointestinal pain [Recovering/Resolving]

NARRATIVE: CASE EVENT DATE: 20211206
